FAERS Safety Report 8220064-7 (Version None)
Quarter: 2012Q1

REPORT INFORMATION
  Report Type: 
  Country: None (occurrence: None)
  Receive Date: 20120320
  Receipt Date: 20120312
  Transmission Date: 20120608
  Serious: Yes (Hospitalization)
  Sender: FDA-Public Use
  Company Number: US-BIOGENIDEC-2012BI000147

PATIENT
  Age: 53 Year
  Sex: Female

DRUGS (4)
  1. AVONEX [Concomitant]
     Indication: MULTIPLE SCLEROSIS
     Route: 030
     Dates: start: 20001113
  2. AVONEX [Concomitant]
     Route: 030
     Dates: start: 20050624
  3. TYSABRI [Suspect]
     Indication: MULTIPLE SCLEROSIS
     Route: 042
     Dates: start: 20071010
  4. AVONEX [Concomitant]
     Route: 030
     Dates: start: 20071101

REACTIONS (1)
  - ARTHROPATHY [None]
